FAERS Safety Report 6040952-X (Version None)
Quarter: 2009Q1

REPORT INFORMATION
  Report Type: 
  Country: None (occurrence: None)
  Receive Date: 20090116
  Receipt Date: 20080708
  Transmission Date: 20090719
  Serious: Yes (Other)
  Sender: FDA-Public Use
  Company Number: US-BRISTOL-MYERS SQUIBB COMPANY-14254056

PATIENT
  Age: 33 Year
  Sex: Female
  Weight: 75 kg

DRUGS (4)
  1. ABILIFY [Suspect]
     Dates: start: 20080628, end: 20080628
  2. DEPAKOTE [Concomitant]
  3. PROLIXIN [Concomitant]
     Route: 030
  4. GEODON [Concomitant]

REACTIONS (2)
  - CHEST PAIN [None]
  - PAIN [None]
